FAERS Safety Report 19439031 (Version 1)
Quarter: 2021Q2

REPORT INFORMATION
  Report Type: Other
  Country: US (occurrence: US)
  Receive Date: 20210619
  Receipt Date: 20210619
  Transmission Date: 20210717
  Serious: No
  Sender: FDA-Public Use
  Company Number: US-ROCHE-2725838

PATIENT
  Age: 55 Year
  Sex: Female

DRUGS (9)
  1. OCREVUS [Suspect]
     Active Substance: OCRELIZUMAB
     Indication: MULTIPLE SCLEROSIS
     Dosage: (PRESCRIBED AS 300 MG ON DAY 1 AND DAY 15 )
     Route: 042
     Dates: start: 20201117
  2. KEFLEX [Concomitant]
     Active Substance: CEPHALEXIN
  3. PHENOBARBITAL. [Concomitant]
     Active Substance: PHENOBARBITAL
  4. CELECOXIB. [Concomitant]
     Active Substance: CELECOXIB
  5. ULTRAM [Concomitant]
     Active Substance: TRAMADOL HYDROCHLORIDE
  6. LISINOPRIL. [Concomitant]
     Active Substance: LISINOPRIL
  7. DULOXETINE. [Concomitant]
     Active Substance: DULOXETINE
  8. CODEINE [Concomitant]
     Active Substance: CODEINE
  9. ERYTHROMYCIN. [Concomitant]
     Active Substance: ERYTHROMYCIN

REACTIONS (5)
  - Headache [Recovered/Resolved]
  - Back pain [Unknown]
  - Influenza [Unknown]
  - Cough [Unknown]
  - Vertigo [Unknown]

NARRATIVE: CASE EVENT DATE: 20201117
